FAERS Safety Report 6013166-7 (Version None)
Quarter: 2008Q4

REPORT INFORMATION
  Report Type: 
  Country: None (occurrence: None)
  Receive Date: 20081217
  Receipt Date: 20081210
  Transmission Date: 20090506
  Serious: Yes (Hospitalization)
  Sender: FDA-Public Use
  Company Number: 20712

PATIENT
  Age: 46 Year
  Sex: Female
  Weight: 75.749 kg

DRUGS (2)
  1. CARBOPLATIN [Suspect]
     Indication: OVARIAN CANCER
     Dosage: 885 MG Q21DAYS IV
     Route: 042
     Dates: start: 20080804, end: 20081101
  2. TAXOTERE [Suspect]
     Indication: OVARIAN CANCER
     Dosage: 138 MG IV
     Route: 042
     Dates: start: 20080804

REACTIONS (3)
  - CLOSTRIDIUM DIFFICILE COLITIS [None]
  - DIARRHOEA [None]
  - NEUTROPENIA [None]
